FAERS Safety Report 13023635 (Version 1)
Quarter: 2016Q4

REPORT INFORMATION
  Report Type: Spontaneous
  Country: US (occurrence: US)
  Receive Date: 20161212
  Receipt Date: 20161212
  Transmission Date: 20170207
  Serious: No
  Sender: FDA-Public Use
  Company Number: None

PATIENT
  Sex: Female

DRUGS (1)
  1. REPATHA [Suspect]
     Active Substance: EVOLOCUMAB
     Route: 058
     Dates: start: 20160601, end: 20161101

REACTIONS (5)
  - Dysphagia [None]
  - Burning sensation [None]
  - Rash [None]
  - Gastrooesophageal reflux disease [None]
  - Oropharyngeal pain [None]
